FAERS Safety Report 7418460-0 (Version None)
Quarter: 2011Q2

REPORT INFORMATION
  Report Type: 
  Country: None (occurrence: None)
  Receive Date: 20110415
  Receipt Date: 20110405
  Transmission Date: 20111010
  Serious: Yes (Hospitalization, Disabling, Other)
  Sender: FDA-Public Use
  Company Number: US-MERCK-1101USA01550

PATIENT
  Age: 55 Year
  Sex: Male

DRUGS (4)
  1. ZOCOR [Concomitant]
     Indication: HYPERCHOLESTEROLAEMIA
     Route: 048
     Dates: start: 19940101
  2. ALENDRONATE SODIUM [Suspect]
     Indication: OSTEOPOROSIS
     Route: 048
     Dates: start: 20080101, end: 20101002
  3. ACTONEL [Suspect]
     Indication: OSTEOPOROSIS
     Route: 065
  4. FOSAMAX [Suspect]
     Indication: OSTEOPOROSIS
     Route: 048
     Dates: start: 20010101, end: 20080101

REACTIONS (17)
  - LOOSE TOOTH [None]
  - ANKLE FRACTURE [None]
  - HYPERTENSION [None]
  - VITAMIN D DEFICIENCY [None]
  - TOOTH ABSCESS [None]
  - SPINAL FRACTURE [None]
  - FEMUR FRACTURE [None]
  - ABSCESS DRAINAGE [None]
  - DENTAL CARIES [None]
  - OSTEONECROSIS OF JAW [None]
  - BONE DENSITY DECREASED [None]
  - PERIODONTAL DISEASE [None]
  - IMPAIRED HEALING [None]
  - TOOTH FRACTURE [None]
  - CALCIUM DEFICIENCY [None]
  - ORAL INFECTION [None]
  - TIBIA FRACTURE [None]
